FAERS Safety Report 23108145 (Version 1)
Quarter: 2023Q4

REPORT INFORMATION
  Report Type: Report from Study
  Country: DE (occurrence: DE)
  Receive Date: 20231026
  Receipt Date: 20231026
  Transmission Date: 20240109
  Serious: Yes (Death, Other)
  Sender: FDA-Public Use
  Company Number: None

PATIENT
  Age: 65 Year
  Sex: Female

DRUGS (13)
  1. CAPECITABINE [Suspect]
     Active Substance: CAPECITABINE
     Indication: Breast cancer
     Route: 065
  2. CARBOPLATIN [Suspect]
     Active Substance: CARBOPLATIN
     Indication: Breast cancer
     Route: 065
  3. DOXORUBICIN [Suspect]
     Active Substance: DOXORUBICIN
     Indication: Breast cancer
     Route: 065
  4. VINORELBINE [Suspect]
     Active Substance: VINORELBINE TARTRATE
     Indication: Breast cancer
     Route: 065
  5. ERIBULIN [Suspect]
     Active Substance: ERIBULIN
     Indication: Breast cancer
     Route: 065
  6. ABRAXANE [Suspect]
     Active Substance: PACLITAXEL
     Indication: Breast cancer
     Dosage: 125 MG/M2
     Route: 041
     Dates: start: 20170214, end: 20170303
  7. TAXOL [Suspect]
     Active Substance: PACLITAXEL
     Indication: Breast cancer
     Route: 065
  8. BEVACIZUMAB [Suspect]
     Active Substance: BEVACIZUMAB
     Indication: Breast cancer
     Route: 065
  9. ENOXAPARIN SODIUM [Concomitant]
     Active Substance: ENOXAPARIN SODIUM
     Indication: Product used for unknown indication
     Route: 065
  10. METOPROLOL [Concomitant]
     Active Substance: METOPROLOL
     Indication: Product used for unknown indication
     Route: 065
  11. CALCIUM [Concomitant]
     Active Substance: CALCIUM
     Indication: Product used for unknown indication
     Route: 065
  12. TORAM [Concomitant]
     Indication: Product used for unknown indication
     Route: 065
  13. MOVICOL [Concomitant]
     Active Substance: POLYETHYLENE GLYCOL 3350\POTASSIUM CHLORIDE\SODIUM BICARBONATE\SODIUM CHLORIDE
     Indication: Product used for unknown indication
     Route: 065

REACTIONS (3)
  - Fatigue [Recovered/Resolved]
  - Polyneuropathy [Recovered/Resolved]
  - Breast cancer metastatic [Fatal]

NARRATIVE: CASE EVENT DATE: 20170303
